FAERS Safety Report 5817249-3 (Version None)
Quarter: 2008Q3

REPORT INFORMATION
  Report Type: 
  Country: None (occurrence: None)
  Receive Date: 20080722
  Receipt Date: 20080711
  Transmission Date: 20090109
  Serious: Yes (Disabling, Other)
  Sender: FDA-Public Use
  Company Number: US-BAYER-200827898NA

PATIENT
  Age: 80 Year
  Sex: Female

DRUGS (1)
  1. CIPRO [Suspect]
     Indication: INFECTION
     Dosage: UNIT DOSE: 500 MG

REACTIONS (2)
  - OSTEOARTHRITIS [None]
  - TENDONITIS [None]
